FAERS Safety Report 8499763-8 (Version None)
Quarter: 2012Q3

REPORT INFORMATION
  Report Type: 
  Country: None (occurrence: None)
  Receive Date: 20120710
  Receipt Date: 20120702
  Transmission Date: 20120928
  Serious: Yes (Other)
  Sender: FDA-Public Use
  Company Number: US-CELGENEUS-163-21880-12070231

PATIENT
  Sex: Female
  Weight: 72.64 kg

DRUGS (14)
  1. COUMADIN [Concomitant]
     Route: 065
  2. EXJADE [Concomitant]
     Route: 065
  3. CAMPATH [Concomitant]
     Route: 065
  4. REVLIMID [Suspect]
     Dosage: 5 MILLIGRAM
     Route: 048
     Dates: start: 20111001
  5. REVLIMID [Suspect]
     Dosage: 10-15MG
     Route: 048
     Dates: start: 20120101
  6. REVLIMID [Suspect]
     Dosage: 20 MILLIGRAM
     Route: 048
     Dates: start: 20120401, end: 20120501
  7. VALACYCLOVIR HYDROCHLORIDE [Concomitant]
     Route: 065
  8. SULFAMETHOXAZOLE [Concomitant]
     Route: 065
  9. ACTONEL [Concomitant]
     Route: 065
  10. FOLIC ACID [Concomitant]
     Route: 065
  11. PANTOPRAZOLE [Concomitant]
     Route: 065
  12. ACTOS [Concomitant]
     Route: 065
  13. HUMULIN 70/30 [Concomitant]
     Route: 065
  14. TRICOR [Concomitant]
     Route: 065

REACTIONS (1)
  - SKIN ULCER [None]
